FAERS Safety Report 9789787 (Version 1)
Quarter: 2013Q4

REPORT INFORMATION
  Report Type: Spontaneous
  Country: GB (occurrence: GB)
  Receive Date: 20131231
  Receipt Date: 20131231
  Transmission Date: 20140711
  Serious: Yes (Other)
  Sender: FDA-Public Use
  Company Number: GB-ACCORD-020965

PATIENT
  Age: 2 Decade
  Sex: Female

DRUGS (13)
  1. MYCOPHENOLATE MOFETIL [Suspect]
     Indication: LIVER TRANSPLANT
     Route: 048
     Dates: start: 20080702
  2. TACROLIMUS [Interacting]
     Indication: LIVER TRANSPLANT
     Dosage: ALTERNATING DOSE OF 1MG/0.5MG PER DAY INITIALLY
     Route: 048
     Dates: start: 20080702
  3. VORICONAZOLE [Interacting]
     Indication: ASPERGILLUS INFECTION
     Dosage: FROM UNKNOWN DATE AFTER LIP PAIN AND SORES MOUTH, DOSE INCREASED TO 175MG TWICE DAILY AND ONGOING.
     Route: 048
     Dates: start: 20130925, end: 201310
  4. PANCREATIN [Concomitant]
  5. SALBUTAMOL [Concomitant]
     Route: 055
  6. RETINOL [Concomitant]
     Indication: CYSTIC FIBROSIS
  7. INSULIN HUMAN [Concomitant]
  8. BUDESONIDE W/FORMOTEROL FUMARATE [Concomitant]
  9. ASPIRIN [Concomitant]
  10. TOCOPHEROL [Concomitant]
  11. CETIRIZINE [Concomitant]
  12. ACETYLCYSTEINE [Concomitant]
  13. COLECALCIFEROL [Concomitant]

REACTIONS (5)
  - Skin exfoliation [Not Recovered/Not Resolved]
  - Alopecia [Not Recovered/Not Resolved]
  - Potentiating drug interaction [Unknown]
  - Stomatitis [Recovering/Resolving]
  - Renal disorder [Unknown]
